FAERS Safety Report 19708146 (Version 4)
Quarter: 2021Q3

REPORT INFORMATION
  Report Type: Report from Study
  Country: US (occurrence: US)
  Receive Date: 20210816
  Receipt Date: 20210916
  Transmission Date: 20211014
  Serious: Yes (Hospitalization)
  Sender: FDA-Public Use
  Company Number: US-B.I. PHARMACEUTICALS,INC./RIDGEFIELD-2021-BI-089114

PATIENT
  Age: 89 Year
  Sex: Male

DRUGS (2)
  1. OFEV [Suspect]
     Active Substance: NINTEDANIB
     Indication: IDIOPATHIC PULMONARY FIBROSIS
     Dosage: 100 MG BID EVERY 12 HOURS WITH FOOD
     Route: 048
     Dates: start: 20210228
  2. NAPROXEN. [Suspect]
     Active Substance: NAPROXEN
     Indication: PRODUCT USED FOR UNKNOWN INDICATION
     Dosage: 100 MG PO BID
     Route: 048
     Dates: start: 202102

REACTIONS (36)
  - Constipation [Unknown]
  - Oropharyngeal pain [Recovered/Resolved]
  - Depression [Recovered/Resolved]
  - Wheezing [Recovered/Resolved]
  - Sleep disorder [Not Recovered/Not Resolved]
  - Oropharyngeal pain [Not Recovered/Not Resolved]
  - Blood pressure increased [Recovered/Resolved]
  - Nasopharyngitis [Unknown]
  - Asthenia [Unknown]
  - Arthritis [Unknown]
  - Nasopharyngitis [Not Recovered/Not Resolved]
  - Cough [Not Recovered/Not Resolved]
  - Feeling abnormal [Not Recovered/Not Resolved]
  - Asthenia [Not Recovered/Not Resolved]
  - Diarrhoea [Not Recovered/Not Resolved]
  - Decreased appetite [Unknown]
  - Anal incontinence [Unknown]
  - Blood glucose increased [Unknown]
  - Blood pressure increased [Unknown]
  - Urinary incontinence [Not Recovered/Not Resolved]
  - Asthenia [Not Recovered/Not Resolved]
  - Atrial fibrillation [Not Recovered/Not Resolved]
  - Rhinovirus infection [Recovered/Resolved]
  - Oxygen saturation decreased [Not Recovered/Not Resolved]
  - Walking aid user [Not Recovered/Not Resolved]
  - Sleep deficit [Not Recovered/Not Resolved]
  - Cough [Recovered/Resolved]
  - Intestinal congestion [Not Recovered/Not Resolved]
  - Dyspnoea [Recovering/Resolving]
  - Diarrhoea [Unknown]
  - Weight decreased [Unknown]
  - Depression [Unknown]
  - Dyspnoea [Unknown]
  - Decreased appetite [Recovered/Resolved]
  - Productive cough [Recovered/Resolved]
  - Increased appetite [Unknown]

NARRATIVE: CASE EVENT DATE: 202102
